FAERS Safety Report 19801132 (Version 2)
Quarter: 2022Q3

REPORT INFORMATION
  Report Type: Spontaneous
  Country: US (occurrence: US)
  Receive Date: 20210907
  Receipt Date: 20220726
  Transmission Date: 20221026
  Serious: Yes (Death)
  Sender: FDA-Public Use
  Company Number: US-TAIHO ONCOLOGY INC-EU-2021-02814

PATIENT
  Age: 64 Year
  Sex: Female

DRUGS (2)
  1. LONSURF [Suspect]
     Active Substance: TIPIRACIL HYDROCHLORIDE\TRIFLURIDINE
     Indication: Colon cancer
     Dosage: CYCLE UNKNOWN
     Route: 048
  2. CABOMETYX [Suspect]
     Active Substance: CABOZANTINIB S-MALATE
     Indication: Colon cancer
     Route: 048
     Dates: start: 20210427

REACTIONS (8)
  - Hepatic failure [Fatal]
  - Malignant neoplasm progression [Fatal]
  - Disorganised speech [Unknown]
  - Disorientation [Unknown]
  - Thinking abnormal [Unknown]
  - Tongue ulceration [Unknown]
  - Fatigue [Unknown]
  - Off label use [Unknown]
